FAERS Safety Report 11253319 (Version 1)
Quarter: 2015Q3

REPORT INFORMATION
  Report Type: Spontaneous
  Country: US (occurrence: US)
  Receive Date: 20150709
  Receipt Date: 20150709
  Transmission Date: 20151125
  Serious: Yes (Other)
  Sender: FDA-Public Use
  Company Number: US-TEVA-546617USA

PATIENT
  Age: 29 Year
  Sex: Female
  Weight: 79.45 kg

DRUGS (7)
  1. PHYTOSONE SR, [Concomitant]
  2. VITAMIN D [Concomitant]
     Active Substance: CHOLECALCIFEROL
  3. COENZYME Q10, [Concomitant]
  4. VENLAFAXINE [Suspect]
     Active Substance: VENLAFAXINE HYDROCHLORIDE
     Indication: HOT FLUSH
     Dosage: 1800 MILLIGRAM DAILY;
     Route: 048
     Dates: start: 201406
  5. CURCUMIN [Concomitant]
     Active Substance: CURCUMIN
  6. XALKORI [Suspect]
     Active Substance: CRIZOTINIB
     Indication: CHONDROSARCOMA
     Dosage: 400 MILLIGRAM DAILY;
     Route: 048
     Dates: start: 2014
  7. ACETYL L-CARNITINE [Concomitant]
     Active Substance: ACETYLCARNITINE

REACTIONS (8)
  - Neoplasm malignant [Not Recovered/Not Resolved]
  - Visual impairment [Not Recovered/Not Resolved]
  - Heart rate decreased [Recovered/Resolved]
  - Pancreatic neoplasm [Not Recovered/Not Resolved]
  - Metastasis [Not Recovered/Not Resolved]
  - Seizure like phenomena [Not Recovered/Not Resolved]
  - Feeling abnormal [Not Recovered/Not Resolved]
  - Drug withdrawal syndrome [Recovered/Resolved]

NARRATIVE: CASE EVENT DATE: 201409
